FAERS Safety Report 21022664 (Version 7)
Quarter: 2022Q3

REPORT INFORMATION
  Report Type: Spontaneous
  Country: DE (occurrence: DE)
  Receive Date: 20220629
  Receipt Date: 20220809
  Transmission Date: 20221027
  Serious: Yes (Hospitalization, Other)
  Sender: FDA-Public Use
  Company Number: DE-MYLANLABS-2021M1039397

PATIENT
  Sex: Male
  Weight: 80 kg

DRUGS (130)
  1. ATORVASTATIN CALCIUM [Suspect]
     Active Substance: ATORVASTATIN CALCIUM
     Dosage: 1 DF, 1X/DAY
     Dates: start: 20180102, end: 20180117
  2. ATORVASTATIN CALCIUM [Suspect]
     Active Substance: ATORVASTATIN CALCIUM
     Dosage: 1 DF, 1X/DAY
     Dates: start: 20201016
  3. ATORVASTATIN CALCIUM [Suspect]
     Active Substance: ATORVASTATIN CALCIUM
     Dosage: 1 DF, 1X/DAY
     Dates: start: 20201017
  4. ATORVASTATIN CALCIUM [Suspect]
     Active Substance: ATORVASTATIN CALCIUM
     Dosage: 1 DF, 1X/DAY
     Dates: start: 20201018
  5. ATORVASTATIN CALCIUM [Suspect]
     Active Substance: ATORVASTATIN CALCIUM
     Dosage: 1 DF, 1X/DAY
     Dates: start: 20201019
  6. ATORVASTATIN CALCIUM [Suspect]
     Active Substance: ATORVASTATIN CALCIUM
     Dosage: 1 DF, 1X/DAY
     Dates: start: 20201020
  7. ATORVASTATIN CALCIUM [Suspect]
     Active Substance: ATORVASTATIN CALCIUM
     Dosage: 1 DF, 1X/DAY
     Dates: start: 20201021
  8. PANTOPRAZOLE [Suspect]
     Active Substance: PANTOPRAZOLE
     Dosage: 1 DF, 1X/DAY
     Dates: start: 20180110, end: 20180117
  9. PANTOPRAZOLE [Suspect]
     Active Substance: PANTOPRAZOLE
     Dosage: 1 DF, 1X/DAY
     Dates: start: 20201016
  10. PANTOPRAZOLE [Suspect]
     Active Substance: PANTOPRAZOLE
     Dosage: 1 DF, 1X/DAY
     Dates: start: 20201017
  11. PANTOPRAZOLE [Suspect]
     Active Substance: PANTOPRAZOLE
     Dosage: 1 DF, 1X/DAY
     Dates: start: 20201018
  12. PANTOPRAZOLE [Suspect]
     Active Substance: PANTOPRAZOLE
     Dosage: 1 DF, 1X/DAY
     Dates: start: 20201019
  13. PANTOPRAZOLE [Suspect]
     Active Substance: PANTOPRAZOLE
     Dosage: 1 DF, 1X/DAY (REPORTEDLY: 40)
     Dates: start: 20201020
  14. PANTOPRAZOLE [Suspect]
     Active Substance: PANTOPRAZOLE
     Dosage: 1 DF, 1X/DAY
     Dates: start: 20201021
  15. PANTOPRAZOLE [Suspect]
     Active Substance: PANTOPRAZOLE
     Dosage: 1-0
     Dates: start: 20190918, end: 20190919
  16. AMLODIPINE BESYLATE [Suspect]
     Active Substance: AMLODIPINE BESYLATE
     Dosage: 1 DF, 2X/DAY
     Dates: start: 20180102, end: 20180110
  17. AMLODIPINE BESYLATE [Suspect]
     Active Substance: AMLODIPINE BESYLATE
     Dosage: 1/2-0-1
     Dates: start: 20190910, end: 20190916
  18. AMLODIPINE BESYLATE [Suspect]
     Active Substance: AMLODIPINE BESYLATE
     Dosage: 0-0-1
     Dates: start: 20190917, end: 20190919
  19. SPIRONOLACTONE [Suspect]
     Active Substance: SPIRONOLACTONE
     Dosage: UNK
     Dates: end: 20201016
  20. VALERIAN [Suspect]
     Active Substance: VALERIAN
     Dosage: UNK
     Dates: start: 20201017
  21. VALERIAN [Suspect]
     Active Substance: VALERIAN
     Dosage: UNK
     Dates: start: 20201018
  22. VALERIAN [Suspect]
     Active Substance: VALERIAN
     Dosage: 1 DF, 1X/DAY
     Dates: start: 20180102, end: 20180118
  23. VALERIAN [Suspect]
     Active Substance: VALERIAN
     Dosage: UNK, 1X/DAY
     Dates: start: 20190911
  24. ASPIRIN [Suspect]
     Active Substance: ASPIRIN
     Dosage: UNK, QD 1-0-0
     Dates: start: 20180110, end: 20180116
  25. ASPIRIN [Suspect]
     Active Substance: ASPIRIN
     Dosage: UNK, QD 1-0-0
     Dates: start: 20180102, end: 20180118
  26. ASPIRIN [Suspect]
     Active Substance: ASPIRIN
     Dosage: UNK, QD 1-0-0
     Dates: start: 20190911
  27. ZOPICLONE [Suspect]
     Active Substance: ZOPICLONE
     Dosage: 1 DF, 1X/DAY
     Dates: start: 20180110, end: 20180116
  28. ZOPICLONE [Suspect]
     Active Substance: ZOPICLONE
     Dosage: UNK
     Dates: start: 20190910, end: 20190912
  29. ZOPICLONE [Suspect]
     Active Substance: ZOPICLONE
     Dosage: UNK
     Dates: start: 20190914, end: 20190919
  30. ZOPICLONE [Suspect]
     Active Substance: ZOPICLONE
     Dosage: 1 DF, 1X/DAY
     Dates: end: 20201016
  31. XARELTO [Suspect]
     Active Substance: RIVAROXABAN
     Indication: Hypertension
     Dosage: 1 DF, 1X/DAY
     Dates: end: 20201016
  32. XARELTO [Suspect]
     Active Substance: RIVAROXABAN
     Dosage: 1-0-0
     Dates: start: 20190910, end: 20190912
  33. XARELTO [Suspect]
     Active Substance: RIVAROXABAN
     Dosage: 1-0-0
     Dates: start: 20190914, end: 20190919
  34. XARELTO [Suspect]
     Active Substance: RIVAROXABAN
     Dosage: 320 MG, 1X/DAY
     Dates: start: 20160419
  35. XARELTO [Suspect]
     Active Substance: RIVAROXABAN
     Dosage: 320 MG, 1X/DAY
     Dates: start: 20160716
  36. XARELTO [Suspect]
     Active Substance: RIVAROXABAN
     Dosage: 320 MG, 1X/DAY
     Dates: start: 20161103
  37. XARELTO [Suspect]
     Active Substance: RIVAROXABAN
     Dosage: 320 MG, 1X/DAY
     Dates: start: 20170303
  38. XARELTO [Suspect]
     Active Substance: RIVAROXABAN
     Dosage: 320 MG, 1X/DAY
     Dates: start: 20170614
  39. XARELTO [Suspect]
     Active Substance: RIVAROXABAN
     Dosage: 320 MG, 1X/DAY
     Dates: start: 20170914
  40. XARELTO [Suspect]
     Active Substance: RIVAROXABAN
     Dosage: 320 MG, 1X/DAY
     Dates: start: 20171103
  41. XARELTO [Suspect]
     Active Substance: RIVAROXABAN
     Dosage: 320 MG, 1X/DAY
     Dates: start: 20180102, end: 20180118
  42. XARELTO [Suspect]
     Active Substance: RIVAROXABAN
     Dosage: UNK
     Dates: start: 20201016, end: 20201021
  43. VALSARTAN [Suspect]
     Active Substance: VALSARTAN
     Indication: Hypertension
     Dosage: 320 MG, 1X/DAY (MORNING)
     Dates: start: 20160419
  44. VALSARTAN [Suspect]
     Active Substance: VALSARTAN
     Dosage: 320 MG, 1X/DAY (MORNING)
     Dates: start: 20160716
  45. VALSARTAN [Suspect]
     Active Substance: VALSARTAN
     Dosage: 320 MG, 1X/DAY (MORNING)
     Dates: start: 20161103
  46. VALSARTAN [Suspect]
     Active Substance: VALSARTAN
     Dosage: 320 MG, 1X/DAY (MORNING)
     Dates: start: 20170303
  47. VALSARTAN [Suspect]
     Active Substance: VALSARTAN
     Dosage: 320 MG, 1X/DAY (MORNING)
     Dates: start: 20170303
  48. VALSARTAN [Suspect]
     Active Substance: VALSARTAN
     Dosage: 320 MG, 1X/DAY (MORNING)
     Dates: start: 20170614
  49. VALSARTAN [Suspect]
     Active Substance: VALSARTAN
     Dosage: 320 MG, 1X/DAY (MORNING)
     Dates: start: 20170914
  50. VALSARTAN [Suspect]
     Active Substance: VALSARTAN
     Dosage: 320 MG, 1X/DAY (MORNING)
     Dates: start: 20171103
  51. VALSARTAN [Suspect]
     Active Substance: VALSARTAN
     Dosage: 320 MILLIGRAM, QD
     Dates: start: 20180102, end: 20180118
  52. VALSARTAN [Suspect]
     Active Substance: VALSARTAN
     Dosage: UNK UNK, 1X/DAY
     Dates: start: 20201016
  53. VALSARTAN [Suspect]
     Active Substance: VALSARTAN
     Dosage: UNK UNK, 1X/DAY
     Dates: start: 20201017
  54. VALSARTAN [Suspect]
     Active Substance: VALSARTAN
     Dosage: UNK UNK, 1X/DAY
     Dates: start: 20201018
  55. VALSARTAN [Suspect]
     Active Substance: VALSARTAN
     Dosage: UNK UNK, 1X/DAY
     Dates: start: 20201019
  56. VALSARTAN [Suspect]
     Active Substance: VALSARTAN
     Dosage: UNK UNK, 1X/DAY
     Dates: start: 20201020
  57. VALSARTAN [Suspect]
     Active Substance: VALSARTAN
     Dosage: UNK UNK, 1X/DAY
     Dates: start: 20201021
  58. VALSARTAN [Suspect]
     Active Substance: VALSARTAN
     Dosage: 8 MG, 1X/DAY
     Dates: start: 20190915
  59. VALSARTAN [Suspect]
     Active Substance: VALSARTAN
     Dosage: 100 MG, 1X/DAY
     Dates: start: 20190910
  60. VALSARTAN [Suspect]
     Active Substance: VALSARTAN
     Indication: Hypertension
     Dosage: 320 MG
     Route: 048
  61. VALSARTAN [Suspect]
     Active Substance: VALSARTAN
     Dosage: 100 MILLIGRAM, QD
     Dates: start: 20190910
  62. VALSARTAN [Suspect]
     Active Substance: VALSARTAN
     Dosage: 8 MILLIGRAM, QD
     Dates: start: 20190915
  63. VALSARTAN [Suspect]
     Active Substance: VALSARTAN
     Indication: Product used for unknown indication
     Dosage: 0.5 - 0 - 0 (MIN. DOSE FREQUENCY) AND 1 - 0 - 0 (MAX DOSE FREQUENCY)
     Dates: start: 20180102, end: 20180118
  64. VALSARTAN [Suspect]
     Active Substance: VALSARTAN
     Dosage: 1 DF, 1X/DAY
     Dates: start: 20201016
  65. VALSARTAN [Suspect]
     Active Substance: VALSARTAN
     Dosage: 1 DF, 1X/DAY
     Dates: start: 20201017
  66. VALSARTAN [Suspect]
     Active Substance: VALSARTAN
     Dosage: 1 DF, 1X/DAY
     Dates: start: 20201018
  67. VALSARTAN [Suspect]
     Active Substance: VALSARTAN
     Dosage: 1 DF, 1X/DAY
     Dates: start: 20201019
  68. VALSARTAN [Suspect]
     Active Substance: VALSARTAN
     Dosage: 1 DF, 1X/DAY
     Dates: start: 20201020
  69. VALSARTAN [Suspect]
     Active Substance: VALSARTAN
     Dosage: 1 DF, 1X/DAY
     Dates: start: 20201021
  70. VALSARTAN [Suspect]
     Active Substance: VALSARTAN
     Route: 048
  71. BISOPROLOL [Suspect]
     Active Substance: BISOPROLOL
     Dosage: 0.5 DF, 1X/DAY
     Dates: start: 20180102, end: 20180118
  72. BISOPROLOL [Suspect]
     Active Substance: BISOPROLOL
     Dosage: 1 DF, 1X/DAY
     Dates: start: 20201016
  73. BISOPROLOL [Suspect]
     Active Substance: BISOPROLOL
     Dosage: 1 DF, 1X/DAY
     Dates: start: 20201017
  74. BISOPROLOL [Suspect]
     Active Substance: BISOPROLOL
     Dosage: 0.5 UNK, 1X/DAY (0.5-0-0)
     Dates: start: 20201018
  75. BISOPROLOL [Suspect]
     Active Substance: BISOPROLOL
     Dosage: 1 DF, 1X/DAY
     Dates: start: 20201019
  76. BISOPROLOL [Suspect]
     Active Substance: BISOPROLOL
     Dosage: 1 DF, 1X/DAY
     Dates: start: 20201020
  77. BISOPROLOL [Suspect]
     Active Substance: BISOPROLOL
     Dosage: 1 DF, 1X/DAY
     Dates: start: 20201021
  78. BISOPROLOL [Suspect]
     Active Substance: BISOPROLOL
     Dosage: 1 DF, 1X/DAY
     Dates: start: 20180110, end: 20180117
  79. FERROUS GLUCONATE [Suspect]
     Active Substance: FERROUS GLUCONATE
     Indication: Product used for unknown indication
     Dosage: 1 DF, 1X/DAY
     Dates: start: 20180110, end: 20180117
  80. FERROUS GLUCONATE [Suspect]
     Active Substance: FERROUS GLUCONATE
     Dosage: 1 DF, 1X/DAY
     Dates: start: 20180102, end: 20180118
  81. FERROUS GLUCONATE [Suspect]
     Active Substance: FERROUS GLUCONATE
     Dosage: 0.5 MG, 1X/DAY
     Dates: start: 20201016
  82. ALLOPURINOL [Suspect]
     Active Substance: ALLOPURINOL
     Dosage: 1 DF, 1X/DAY
     Dates: start: 20180102, end: 20180118
  83. ALLOPURINOL [Suspect]
     Active Substance: ALLOPURINOL
     Dosage: 1X/DAY (0.5-0-0)
     Dates: start: 20201016
  84. ALLOPURINOL [Suspect]
     Active Substance: ALLOPURINOL
     Dosage: 1X/DAY (0.5-0-0)
     Dates: start: 20201017
  85. ALLOPURINOL [Suspect]
     Active Substance: ALLOPURINOL
     Dosage: 1X/DAY (0.5-0-0)
     Dates: start: 20201018
  86. ALLOPURINOL [Suspect]
     Active Substance: ALLOPURINOL
     Dosage: 1X/DAY (0.5-0-0)
     Dates: start: 20201019
  87. ALLOPURINOL [Suspect]
     Active Substance: ALLOPURINOL
     Dosage: 1X/DAY (0.5-0-0)
     Dates: start: 20201020
  88. ALLOPURINOL [Suspect]
     Active Substance: ALLOPURINOL
     Dosage: 1X/DAY (0.5-0-0)
     Dates: start: 20201021
  89. ALLOPURINOL [Suspect]
     Active Substance: ALLOPURINOL
     Dosage: 1/2-0-0
     Dates: start: 20190910, end: 20190919
  90. CETIRIZINE [Suspect]
     Active Substance: CETIRIZINE HYDROCHLORIDE
     Dosage: 1 DF, 1X/DAY
     Dates: start: 20201016
  91. CETIRIZINE [Suspect]
     Active Substance: CETIRIZINE HYDROCHLORIDE
     Dosage: 1 DF, 1X/DAY
     Dates: start: 20201017
  92. CETIRIZINE [Suspect]
     Active Substance: CETIRIZINE HYDROCHLORIDE
     Dosage: 1 DF, 1X/DAY
     Dates: start: 20201018
  93. CETIRIZINE [Suspect]
     Active Substance: CETIRIZINE HYDROCHLORIDE
     Dosage: 1 DF, 1X/DAY
     Dates: start: 20201019
  94. CETIRIZINE [Suspect]
     Active Substance: CETIRIZINE HYDROCHLORIDE
     Dosage: 1 DF, 1X/DAY
     Dates: start: 20201020
  95. CETIRIZINE [Suspect]
     Active Substance: CETIRIZINE HYDROCHLORIDE
     Dosage: 1 DF, 1X/DAY
     Dates: start: 20201021
  96. CETIRIZINE [Suspect]
     Active Substance: CETIRIZINE HYDROCHLORIDE
     Dosage: 1 DF, 1X/DAY
     Dates: start: 20180110, end: 20180118
  97. TORSEMIDE [Suspect]
     Active Substance: TORSEMIDE
     Dosage: 1 DF, 1X/DAY
     Dates: start: 20180110, end: 20180118
  98. TORSEMIDE [Suspect]
     Active Substance: TORSEMIDE
     Dosage: 1 DF, 1X/DAY
     Dates: start: 20201016
  99. TORSEMIDE [Suspect]
     Active Substance: TORSEMIDE
     Dosage: 1 DF, 1X/DAY
     Dates: start: 20201017
  100. TORSEMIDE [Suspect]
     Active Substance: TORSEMIDE
     Dosage: 1 DF, 1X/DAY
     Dates: start: 20201018
  101. TORSEMIDE [Suspect]
     Active Substance: TORSEMIDE
     Dosage: 1 DF, 1X/DAY
     Dates: start: 20201019
  102. TORSEMIDE [Suspect]
     Active Substance: TORSEMIDE
     Dosage: 1 DF, 1X/DAY
     Dates: start: 20201020
  103. TORSEMIDE [Suspect]
     Active Substance: TORSEMIDE
     Dosage: 1 DF, 1X/DAY
     Dates: start: 20201021
  104. TORSEMIDE [Suspect]
     Active Substance: TORSEMIDE
     Dosage: 1 DF, 2X/DAY
     Dates: start: 20180102, end: 20180118
  105. RANEXA [Suspect]
     Active Substance: RANOLAZINE
     Dosage: 1 DF, 2X/DAY
     Dates: start: 20180102, end: 20180118
  106. RANEXA [Suspect]
     Active Substance: RANOLAZINE
     Dosage: 1 DF, 1X/DAY
     Dates: start: 20201019
  107. FOLIC ACID [Suspect]
     Active Substance: FOLIC ACID
     Dosage: 1 DF, 1X/DAY
     Dates: start: 20201019
  108. FOLIC ACID [Suspect]
     Active Substance: FOLIC ACID
     Dosage: 1/2 - 0- 1
  109. FOLIC ACID [Suspect]
     Active Substance: FOLIC ACID
     Dosage: 40 MG, 2X/DAY
  110. FOLIC ACID [Suspect]
     Active Substance: FOLIC ACID
     Dosage: 1-1/2-0
  111. FOLIC ACID [Suspect]
     Active Substance: FOLIC ACID
     Dosage: 0-0-0-1
  112. BISOPROLOL [Concomitant]
     Active Substance: BISOPROLOL
     Dosage: 1/2-0-1
     Dates: start: 20190910, end: 20190919
  113. BISOPROLOL [Concomitant]
     Active Substance: BISOPROLOL
     Dosage: 1-0-1
  114. POTASSIUM CHLORIDE [Concomitant]
     Active Substance: POTASSIUM CHLORIDE
     Dosage: 1-0-1
     Dates: start: 20190916, end: 20190919
  115. POTASSIUM CHLORIDE [Concomitant]
     Active Substance: POTASSIUM CHLORIDE
     Dosage: 2-0-2
  116. CANDESARTAN [Concomitant]
     Active Substance: CANDESARTAN
     Dosage: 1-0-0
     Dates: start: 20190917, end: 20190919
  117. FOLIC ACID [Concomitant]
     Active Substance: FOLIC ACID
     Dosage: 1-0-0
     Dates: start: 20190917, end: 20190919
  118. FUROSEMIDE [Concomitant]
     Active Substance: FUROSEMIDE
     Dosage: 40-40-0 MG
     Dates: start: 20190910, end: 20190916
  119. FUROSEMIDE [Concomitant]
     Active Substance: FUROSEMIDE
     Dosage: 1-1/2-0
     Dates: start: 20190917, end: 20190919
  120. FUROSEMIDE [Concomitant]
     Active Substance: FUROSEMIDE
     Dosage: 1-0-0
  121. FOLIC ACID [Concomitant]
     Active Substance: FOLIC ACID
     Dosage: 1-0-0
     Dates: start: 20190910, end: 20190916
  122. MELPERONE [Concomitant]
     Active Substance: MELPERONE
     Dosage: 0-0-0-1
     Dates: start: 20190910, end: 20190916
  123. MELPERONE [Concomitant]
     Active Substance: MELPERONE
     Dosage: 0-0-0-2
     Dates: start: 20190917, end: 20190919
  124. MELPERONE [Concomitant]
     Active Substance: MELPERONE
     Dosage: 1-0-0
  125. IRON [Concomitant]
     Active Substance: IRON
     Dosage: PAUSED
     Dates: start: 20190910
  126. IRON [Concomitant]
     Active Substance: IRON
     Dosage: 0-0-0-2
  127. RANEXA [Concomitant]
     Active Substance: RANOLAZINE
     Dosage: 2-0-2
     Dates: start: 20190916, end: 20190919
  128. RANEXA [Concomitant]
     Active Substance: RANOLAZINE
     Dosage: UNK UNK, BID
     Dates: start: 20190910, end: 20190915
  129. RANEXA [Concomitant]
     Active Substance: RANOLAZINE
     Dosage: 1-0-0
  130. PLAVIX [Concomitant]
     Active Substance: CLOPIDOGREL BISULFATE
     Dosage: 1-0-0
     Dates: start: 20190914, end: 20190919

REACTIONS (17)
  - Anaemia [Unknown]
  - Pallor [Unknown]
  - Stress [Unknown]
  - Chronic kidney disease [Unknown]
  - Mental impairment [Unknown]
  - Anxiety disorder [Unknown]
  - Sleep disorder [Unknown]
  - Impaired quality of life [Unknown]
  - Fear of disease [Unknown]
  - Depression [Unknown]
  - Rectal polyp [Unknown]
  - Restlessness [Unknown]
  - Nightmare [Unknown]
  - Nervousness [Unknown]
  - Dyspnoea [Not Recovered/Not Resolved]
  - Hyperhidrosis [Unknown]
  - Fatigue [Unknown]
